FAERS Safety Report 7376642 (Version 5)
Quarter: 2018Q3

REPORT INFORMATION
  Report Type: Report from Study
  Country: GB (occurrence: GB)
  Receive Date: 20100504
  Receipt Date: 20180727
  Transmission Date: 20181010
  Serious: Yes (Death, Congenital Anomaly, Other)
  Sender: FDA-Public Use
  Company Number: GB-GILEAD-2010-0028858

PATIENT
  Age: 16 Day
  Sex: Female
  Weight: 3.4 kg

DRUGS (5)
  1. ISENTRESS [Suspect]
     Active Substance: RALTEGRAVIR POTASSIUM
     Indication: HIV INFECTION
     Dosage: 400 MG, BID
     Route: 064
     Dates: start: 20090319
  2. TRUVADA [Suspect]
     Active Substance: EMTRICITABINE\TENOFOVIR DISOPROXIL FUMARATE
     Indication: HIV INFECTION
     Dosage: UNK
     Route: 064
  3. DARUNAVIR [Suspect]
     Active Substance: DARUNAVIR
     Indication: HIV INFECTION
     Route: 064
     Dates: start: 20090310
  4. RITONAVIR. [Suspect]
     Active Substance: RITONAVIR
     Indication: HIV INFECTION
     Dosage: UNK
     Route: 064
     Dates: start: 20090310
  5. ZIDOVUDINE. [Suspect]
     Active Substance: ZIDOVUDINE
     Indication: HIV INFECTION
     Dosage: UNK
     Route: 064
     Dates: start: 20090318

REACTIONS (15)
  - Congenital anomaly in offspring [Fatal]
  - Congenital heart valve disorder [Not Recovered/Not Resolved]
  - Pulmonary valve sclerosis [Fatal]
  - Apnoea [Not Recovered/Not Resolved]
  - Ventricular hypertrophy [Not Recovered/Not Resolved]
  - Sudden infant death syndrome [Fatal]
  - Neonatal respiratory arrest [Fatal]
  - Aortic valve sclerosis [Fatal]
  - Cardiac arrest [Fatal]
  - Maternal drugs affecting foetus [Unknown]
  - Foetal exposure during pregnancy [Recovered/Resolved]
  - Complication of delivery [Not Recovered/Not Resolved]
  - Congenital pulmonary valve disorder [Not Recovered/Not Resolved]
  - Cardiac murmur [Not Recovered/Not Resolved]
  - Large for dates baby [Unknown]

NARRATIVE: CASE EVENT DATE: 20090610
